FAERS Safety Report 7472902-3 (Version None)
Quarter: 2011Q2

REPORT INFORMATION
  Report Type: 
  Country: None (occurrence: None)
  Receive Date: 20110503
  Receipt Date: 20110411
  Transmission Date: 20111010
  Serious: Yes (Life-Threatening, Hospitalization)
  Sender: FDA-Public Use
  Company Number: INT_00022_2011

PATIENT
  Sex: Female
  Weight: 46.2669 kg

DRUGS (1)
  1. CEFTRIAXONE [Suspect]
     Indication: CHRONIC OBSTRUCTIVE PULMONARY DISEASE
     Dosage: (1 G 1X INTRAMUSCULAR)
     Route: 030

REACTIONS (1)
  - ANAPHYLACTIC REACTION [None]
